FAERS Safety Report 7593877-2 (Version None)
Quarter: 2011Q3

REPORT INFORMATION
  Report Type: 
  Country: None (occurrence: None)
  Receive Date: 20110706
  Receipt Date: 20110629
  Transmission Date: 20111222
  Serious: Yes (Hospitalization, Other)
  Sender: FDA-Public Use
  Company Number: PHHY2011DE40058

PATIENT
  Sex: Female

DRUGS (1)
  1. METHERGINE [Suspect]
     Dosage: 75 DRP, QD
     Route: 048
     Dates: start: 20110420, end: 20110423

REACTIONS (2)
  - GRAND MAL CONVULSION [None]
  - EPILEPSY [None]
